FAERS Safety Report 6546299-7 (Version None)
Quarter: 2010Q1

REPORT INFORMATION
  Report Type: 
  Country: None (occurrence: None)
  Receive Date: 20100122
  Receipt Date: 20100112
  Transmission Date: 20100710
  Serious: Yes (Other)
  Sender: FDA-Public Use
  Company Number: US-CELGENEUS-163-21880-10010829

PATIENT
  Sex: Female

DRUGS (1)
  1. REVLIMID [Suspect]
     Route: 048
     Dates: start: 20090708

REACTIONS (5)
  - DIARRHOEA [None]
  - FATIGUE [None]
  - PRURITUS [None]
  - THROMBOCYTOPENIA [None]
  - TUMOUR FLARE [None]
